FAERS Safety Report 24403313 (Version 1)
Quarter: 2024Q4

REPORT INFORMATION
  Report Type: Spontaneous
  Country: GB (occurrence: GB)
  Receive Date: 20241007
  Receipt Date: 20241007
  Transmission Date: 20250115
  Serious: Yes (Hospitalization, Other)
  Sender: CELLTRION
  Company Number: GB-CELLTRION INC.-2024GB018036

PATIENT

DRUGS (4)
  1. YUFLYMA [Suspect]
     Active Substance: ADALIMUMAB-AATY
     Indication: Ankylosing spondylitis
     Dosage: YUFLYMA (ADALIMUMAB) 40MG PEN PK2
     Route: 058
     Dates: start: 202406
  2. YUFLYMA [Suspect]
     Active Substance: ADALIMUMAB-AATY
     Dosage: YUFLYMA (ADALIMUMAB) 40MG PEN PK2
     Route: 058
     Dates: start: 20240715
  3. YUFLYMA [Suspect]
     Active Substance: ADALIMUMAB-AATY
     Dosage: YUFLYMA (ADALIMUMAB) 40MG PEN
     Route: 058
     Dates: start: 202404
  4. YUFLYMA [Suspect]
     Active Substance: ADALIMUMAB-AATY
     Dosage: YUFLYMA (ADALIMUMAB) 40MG PEN
     Route: 058
     Dates: start: 20240826

REACTIONS (7)
  - Cyst rupture [Unknown]
  - Pelvic inflammatory disease [Unknown]
  - Heavy menstrual bleeding [Unknown]
  - Abdominal pain upper [Not Recovered/Not Resolved]
  - Abdominal distension [Unknown]
  - Arthralgia [Unknown]
  - Intentional dose omission [Unknown]
